FAERS Safety Report 14191249 (Version 4)
Quarter: 2018Q2

REPORT INFORMATION
  Report Type: Report from Study
  Country: None (occurrence: US)
  Receive Date: 20171115
  Receipt Date: 20180503
  Transmission Date: 20180711
  Serious: No
  Sender: FDA-Public Use
  Company Number: US-ABBVIE-17K-163-2159211-00

PATIENT
  Sex: Female

DRUGS (3)
  1. HUMIRA [Suspect]
     Active Substance: ADALIMUMAB
     Dosage: DAY 29
     Route: 058
     Dates: start: 201710
  2. HUMIRA [Suspect]
     Active Substance: ADALIMUMAB
     Indication: COLITIS ULCERATIVE
     Dosage: DAY ONE
     Route: 058
     Dates: start: 20171013, end: 20171013
  3. HUMIRA [Suspect]
     Active Substance: ADALIMUMAB
     Dosage: DAY 15
     Route: 058
     Dates: start: 20171027, end: 20171027

REACTIONS (13)
  - Gastrointestinal tract irritation [Not Recovered/Not Resolved]
  - Alopecia [Unknown]
  - Vomiting [Unknown]
  - Rectal haemorrhage [Not Recovered/Not Resolved]
  - Malaise [Unknown]
  - Intestinal polyp [Recovering/Resolving]
  - Nausea [Unknown]
  - Frequent bowel movements [Not Recovered/Not Resolved]
  - Haemorrhoids [Unknown]
  - Diarrhoea [Not Recovered/Not Resolved]
  - Dizziness [Recovered/Resolved]
  - Abdominal pain upper [Recovered/Resolved]
  - Post procedural infection [Recovered/Resolved]

NARRATIVE: CASE EVENT DATE: 2017
